FAERS Safety Report 8149666-3 (Version None)
Quarter: 2012Q1

REPORT INFORMATION
  Report Type: 
  Country: None (occurrence: None)
  Receive Date: 20120218
  Receipt Date: 20111114
  Transmission Date: 20120608
  Serious: No
  Sender: FDA-Public Use
  Company Number: US-ALLERGAN-1114961US

PATIENT
  Age: 58 Year
  Sex: Female

DRUGS (1)
  1. BOTOX COSMETIC [Suspect]
     Indication: SKIN WRINKLING
     Dosage: UNK UNITS
     Route: 030
     Dates: start: 20111016, end: 20111016

REACTIONS (5)
  - RASH [None]
  - CONTUSION [None]
  - SWELLING FACE [None]
  - HAEMATOMA [None]
  - HEADACHE [None]
